FAERS Safety Report 5455803-1 (Version None)
Quarter: 2007Q3

REPORT INFORMATION
  Report Type: 
  Country: None (occurrence: None)
  Receive Date: 20070914
  Receipt Date: 20070910
  Transmission Date: 20080115
  Serious: Yes (Death)
  Sender: FDA-Public Use
  Company Number: 2007BI019163

PATIENT
  Age: 51 Year
  Sex: Female
  Weight: 45.3597 kg

DRUGS (1)
  1. AVONEX [Suspect]
     Indication: MULTIPLE SCLEROSIS
     Dosage: 30 UG; QW; IM
     Route: 030
     Dates: end: 20020101

REACTIONS (3)
  - BLOOD DISORDER [None]
  - INFECTION [None]
  - MYOCARDIAL INFARCTION [None]
